FAERS Safety Report 4907808-4 (Version None)
Quarter: 2006Q1

REPORT INFORMATION
  Report Type: 
  Country: None (occurrence: None)
  Receive Date: 20060210
  Receipt Date: 20051221
  Transmission Date: 20060701
  Serious: Yes (Hospitalization)
  Sender: FDA-Public Use
  Company Number: HQWYE112521DEC05

PATIENT
  Sex: Male

DRUGS (6)
  1. ENBREL [Suspect]
     Indication: RHEUMATOID ARTHRITIS
     Route: 058
     Dates: start: 20051003, end: 20051031
  2. METHOTREXATE [Concomitant]
     Dates: start: 20001210
  3. AZULFIDINE [Concomitant]
     Dates: start: 20010208
  4. PREDNISOLONE [Concomitant]
     Dates: start: 20050526
  5. LOXONIN [Concomitant]
     Dates: start: 19980526
  6. FOLIAMIN [Concomitant]
     Dates: start: 20010826

REACTIONS (1)
  - NEPHROTIC SYNDROME [None]
